FAERS Safety Report 5344417-X (Version None)
Quarter: 2007Q2

REPORT INFORMATION
  Report Type: 
  Country: None (occurrence: None)
  Receive Date: 20070604
  Receipt Date: 20070601
  Transmission Date: 20071010
  Serious: Yes (Death)
  Sender: FDA-Public Use
  Company Number: JP-BOEHRINGER INGELHEIM PHARMACEUTICALS, INC.-2007-BP-01882NB

PATIENT
  Sex: Male
  Weight: 54 kg

DRUGS (2)
  1. MICARDIS [Suspect]
     Indication: RENAL HYPERTENSION
     Route: 048
     Dates: start: 20060725, end: 20061224
  2. BEZATOL SR [Concomitant]
     Indication: HYPERLIPIDAEMIA
     Route: 048
     Dates: start: 20060404, end: 20061224

REACTIONS (1)
  - SUDDEN DEATH [None]
